FAERS Safety Report 6923210-8 (Version None)
Quarter: 2010Q3

REPORT INFORMATION
  Report Type: 
  Country: None (occurrence: None)
  Receive Date: 20100813
  Receipt Date: 20100730
  Transmission Date: 20110219
  Serious: Yes (Hospitalization)
  Sender: FDA-Public Use
  Company Number: CH-ROCHE-716542

PATIENT
  Sex: Female
  Weight: 65 kg

DRUGS (9)
  1. TRASTUZUMAB [Suspect]
     Dosage: LOADING DOSE
     Route: 042
     Dates: start: 20100420, end: 20100420
  2. TRASTUZUMAB [Suspect]
     Dosage: MAINTENANCE DOSE, LAST DOSE PRIOR TO SAE 13 JULY 2010
     Route: 042
     Dates: end: 20100803
  3. PERTUZUMAB [Suspect]
     Dosage: LOADING DOSE.
     Route: 042
     Dates: start: 20100420, end: 20100420
  4. PERTUZUMAB [Suspect]
     Dosage: MAINTENANCE DOSE, LAST DOSE PRIOR TO SAE 13 JULY 2010
     Route: 042
     Dates: end: 20100803
  5. DOCETAXEL [Suspect]
     Dosage: LAST DOSE PRIOR TO SAE 19 JULY 2010
     Route: 042
     Dates: start: 20100622
  6. DOCETAXEL [Suspect]
     Dosage: DOSE REDUCED: (75MG/M2 (130 MG) INSTEAD OF PLANNED 100 MG/M2).
     Route: 042
     Dates: start: 20100803
  7. FLUOROURACIL [Suspect]
     Dosage: LAST DOSE PRIOR TO SAE: 01 JUNE 2010
     Route: 040
     Dates: start: 20100420
  8. CYCLOPHOSPHAMIDE [Suspect]
     Dosage: LAST DOSE PRIOR TO SAE:01 JUNE 2010
     Route: 040
     Dates: start: 20100420
  9. EPIRUBICIN [Suspect]
     Dosage: LAST DOSE PRIOR TO SAE:01JUNE 2010
     Route: 040
     Dates: start: 20100420

REACTIONS (1)
  - CARDIAC FAILURE [None]
